FAERS Safety Report 9170267 (Version 1)
Quarter: 2013Q1

REPORT INFORMATION
  Report Type: Spontaneous
  Country: US (occurrence: None)
  Receive Date: 20130315
  Receipt Date: 20130315
  Transmission Date: 20140127
  Serious: Yes (Life-Threatening, Hospitalization, Other)
  Sender: FDA-Public Use
  Company Number: None

PATIENT
  Age: 83 Year
  Sex: Male
  Weight: 63.5 kg

DRUGS (1)
  1. CLOPIDOGREL [Suspect]

REACTIONS (6)
  - Ulcer haemorrhage [None]
  - Dizziness [None]
  - Fall [None]
  - Head injury [None]
  - Dyspnoea [None]
  - Gait disturbance [None]
